FAERS Safety Report 24737453 (Version 2)
Quarter: 2024Q4

REPORT INFORMATION
  Report Type: Report from Study
  Country: US (occurrence: US)
  Receive Date: 20241216
  Receipt Date: 20241231
  Transmission Date: 20250114
  Serious: No
  Sender: GILEAD
  Company Number: US-GILEAD-2024-0697090

PATIENT
  Age: 73 Year
  Sex: Female

DRUGS (1)
  1. AZTREONAM LYSINE [Suspect]
     Active Substance: AZTREONAM LYSINE
     Indication: Mycobacterial infection
     Dosage: 75 MG
     Route: 055

REACTIONS (2)
  - Product use in unapproved indication [Unknown]
  - Product packaging quantity issue [Unknown]
